FAERS Safety Report 6652824-8 (Version None)
Quarter: 2010Q1

REPORT INFORMATION
  Report Type: 
  Country: None (occurrence: None)
  Receive Date: 20100325
  Receipt Date: 20100325
  Transmission Date: 20100710
  Serious: Yes (Life-Threatening, Hospitalization)
  Sender: FDA-Public Use
  Company Number: None

PATIENT
  Age: 55 Year
  Sex: Female
  Weight: 83.0083 kg

DRUGS (2)
  1. SIMVASTATIN [Suspect]
     Indication: BLOOD CHOLESTEROL INCREASED
     Dosage: 80 OR 40 DAILY PO
     Route: 048
     Dates: start: 20090925, end: 20100223
  2. BIAXIN [Suspect]
     Indication: BRONCHITIS
     Dosage: DAILY PO
     Route: 048
     Dates: start: 20100205, end: 20100215

REACTIONS (13)
  - ASTHENIA [None]
  - BLOOD CREATINE PHOSPHOKINASE INCREASED [None]
  - BRONCHITIS [None]
  - COORDINATION ABNORMAL [None]
  - DRUG INTERACTION [None]
  - DYSSTASIA [None]
  - HEPATIC ENZYME INCREASED [None]
  - LIVER INJURY [None]
  - MALAISE [None]
  - MUSCLE DISORDER [None]
  - MUSCULAR WEAKNESS [None]
  - NASOPHARYNGITIS [None]
  - STRESS [None]
